FAERS Safety Report 20584762 (Version 1)
Quarter: 2022Q1

REPORT INFORMATION
  Report Type: Spontaneous
  Country: JP (occurrence: JP)
  Receive Date: 20220311
  Receipt Date: 20220311
  Transmission Date: 20220424
  Serious: Yes (Other)
  Sender: FDA-Public Use
  Company Number: JP-MSD-M2022-09286

PATIENT
  Age: 72 Year

DRUGS (3)
  1. KEYTRUDA [Suspect]
     Active Substance: PEMBROLIZUMAB
     Indication: Tongue neoplasm malignant stage unspecified
     Dosage: 200 MILLIGRAM, Q3W
     Route: 041
     Dates: start: 202110
  2. FLUOROURACIL [Concomitant]
     Active Substance: FLUOROURACIL
     Indication: Tongue neoplasm malignant stage unspecified
     Dosage: UNK
     Route: 065
     Dates: start: 202110
  3. CISPLATIN [Concomitant]
     Active Substance: CISPLATIN
     Indication: Tongue neoplasm malignant stage unspecified
     Dosage: UNK
     Route: 065
     Dates: start: 202110

REACTIONS (5)
  - Malignant neoplasm progression [Unknown]
  - Cardiac failure [Unknown]
  - Lymphadenopathy [Unknown]
  - Cognitive disorder [Unknown]
  - Incontinence [Unknown]
